FAERS Safety Report 4930651-7 (Version None)
Quarter: 2006Q1

REPORT INFORMATION
  Report Type: 
  Country: None (occurrence: None)
  Receive Date: 20060227
  Receipt Date: 20060213
  Transmission Date: 20060701
  Serious: Yes (Other)
  Sender: FDA-Public Use
  Company Number: TRP_0709_2006

PATIENT
  Age: 40 Year
  Sex: Female
  Weight: 68.0396 kg

DRUGS (6)
  1. RIBASPHERE/RIBAVIRIN/THREE RIVERS PHARMA/200 MG [Suspect]
     Indication: HEPATITIS C
     Dosage: DF PO
     Route: 048
     Dates: start: 20051013
  2. PEG-INTRON [Suspect]
     Indication: HEPATITIS C
     Dosage: DF SC
     Route: 058
     Dates: start: 20051013
  3. CLONAZEPAM [Concomitant]
  4. DARVON [Concomitant]
  5. METFORMIN HYDROCHLORIDE [Concomitant]
  6. TYLENOL W/ CODEINE [Concomitant]

REACTIONS (14)
  - ABDOMINAL PAIN UPPER [None]
  - ANOREXIA [None]
  - ARTHRALGIA [None]
  - ASTHENIA [None]
  - BREAST PAIN [None]
  - DIFFICULTY IN WALKING [None]
  - HAEMATEMESIS [None]
  - HEADACHE [None]
  - INFLUENZA LIKE ILLNESS [None]
  - INSOMNIA [None]
  - NERVOUSNESS [None]
  - PAIN IN EXTREMITY [None]
  - PAROSMIA [None]
  - WEIGHT DECREASED [None]
